FAERS Safety Report 11095425 (Version 1)
Quarter: 2015Q2

REPORT INFORMATION
  Report Type: Spontaneous
  Country: MA (occurrence: MA)
  Receive Date: 20150506
  Receipt Date: 20150506
  Transmission Date: 20150821
  Serious: Yes (Other)
  Sender: FDA-Public Use
  Company Number: MA-MYLANLABS-2015M1015053

PATIENT

DRUGS (2)
  1. ARSENIC [Suspect]
     Active Substance: ARSENIC
     Indication: ACUTE MYELOID LEUKAEMIA
     Route: 065
  2. TRETINOIN. [Suspect]
     Active Substance: TRETINOIN
     Indication: ACUTE MYELOID LEUKAEMIA
     Route: 065

REACTIONS (1)
  - Hidradenitis [Recovering/Resolving]
